FAERS Safety Report 8399836-4 (Version None)
Quarter: 2012Q2

REPORT INFORMATION
  Report Type: 
  Country: None (occurrence: None)
  Receive Date: 20120531
  Receipt Date: 20120525
  Transmission Date: 20120825
  Serious: Yes (Other)
  Sender: FDA-Public Use
  Company Number: JP-PFIZER INC-2012126578

PATIENT
  Age: 82 Year
  Sex: Female

DRUGS (10)
  1. DRAMAMINE [Concomitant]
     Dosage: UNK
     Route: 048
     Dates: start: 20120419
  2. ALENDRONATE SODIUM [Concomitant]
  3. CLARITHROMYCIN [Concomitant]
  4. FAMOTIDINE [Concomitant]
  5. FLURBIPROFEN [Concomitant]
  6. SALMETEROL XINAFOATE/FLUTICASONE PROPIONATE [Concomitant]
  7. VITAMIN B12 [Concomitant]
  8. MUCOSOLVAN [Concomitant]
  9. LYRICA [Suspect]
     Dosage: 75 MG, 2X/DAY
     Route: 048
     Dates: start: 20120518
  10. PREDNISOLONE [Concomitant]

REACTIONS (4)
  - CONTUSION [None]
  - TREMOR [None]
  - LOSS OF CONSCIOUSNESS [None]
  - FALL [None]
